FAERS Safety Report 23827291 (Version 1)
Quarter: 2024Q2

REPORT INFORMATION
  Report Type: Spontaneous
  Country: CN (occurrence: CN)
  Receive Date: 20240507
  Receipt Date: 20240507
  Transmission Date: 20240716
  Serious: Yes (Hospitalization)
  Sender: FDA-Public Use
  Company Number: CN-PFIZER INC-PV202400059055

PATIENT
  Age: 4 Year
  Sex: Male
  Weight: 20 kg

DRUGS (9)
  1. AZITHROMYCIN [Suspect]
     Active Substance: AZITHROMYCIN
     Indication: Infection
     Dosage: 0.2 G, 1X/DAY
     Route: 048
     Dates: start: 20240422, end: 20240424
  2. CEFOTAXIME SODIUM [Suspect]
     Active Substance: CEFOTAXIME SODIUM
     Indication: Infection
     Dosage: 1 G, 2X/DAY
     Route: 041
     Dates: start: 20240422, end: 20240429
  3. POTASSIUM SODIUM 14-DEOXY-11,12-DEHYDROANDROGRAPHOLIDE SUCCINATE [Suspect]
     Active Substance: POTASSIUM SODIUM 14-DEOXY-11,12-DEHYDROANDROGRAPHOLIDE SUCCINATE
     Indication: Symptomatic treatment
     Dosage: 100 MG, 1X/DAY
     Route: 041
     Dates: start: 20240422, end: 20240429
  4. AMBROXOL HYDROCHLORIDE [Suspect]
     Active Substance: AMBROXOL HYDROCHLORIDE
     Indication: Productive cough
     Dosage: 7.5 MG, 2X/DAY
     Route: 041
     Dates: start: 20240422, end: 20240429
  5. SODIUM CHLORIDE [Concomitant]
     Active Substance: SODIUM CHLORIDE
     Indication: Vehicle solution use
     Dosage: 100 ML, 2X/DAY
     Route: 041
     Dates: start: 20240422, end: 20240429
  6. DEXTROSE [Concomitant]
     Active Substance: DEXTROSE\DEXTROSE MONOHYDRATE
     Indication: Vehicle solution use
     Dosage: 100 ML, 1X/DAY
     Route: 041
     Dates: start: 20240422, end: 20240429
  7. DEXTROSE [Concomitant]
     Active Substance: DEXTROSE\DEXTROSE MONOHYDRATE
     Indication: Vehicle solution use
     Dosage: 50 ML, 2X/DAY
     Route: 041
     Dates: start: 20240422, end: 20240429
  8. BUDESONIDE [Concomitant]
     Active Substance: BUDESONIDE
     Indication: Inhalation therapy
     Dosage: UNK
     Route: 055
  9. TERBUTALINE [Concomitant]
     Active Substance: TERBUTALINE
     Indication: Inhalation therapy
     Dosage: UNK
     Route: 055

REACTIONS (2)
  - Dermatitis allergic [Recovering/Resolving]
  - Drug eruption [Recovering/Resolving]

NARRATIVE: CASE EVENT DATE: 20240429
